FAERS Safety Report 6981950-9 (Version None)
Quarter: 2010Q3

REPORT INFORMATION
  Report Type: 
  Country: None (occurrence: None)
  Receive Date: 20100914
  Receipt Date: 20091023
  Transmission Date: 20110219
  Serious: No
  Sender: FDA-Public Use
  Company Number: US-PFIZER INC-2009289102

PATIENT
  Sex: Male

DRUGS (5)
  1. LYRICA [Suspect]
     Indication: HEADACHE
     Dosage: UNK
  2. LYRICA [Suspect]
     Indication: NECK PAIN
  3. ZYPREXA [Concomitant]
     Dosage: UNK
  4. KLONOPIN [Concomitant]
     Dosage: UNK
  5. TOPROL-XL [Concomitant]
     Dosage: UNK

REACTIONS (1)
  - URINARY INCONTINENCE [None]
